FAERS Safety Report 7804242-4 (Version None)
Quarter: 2011Q4

REPORT INFORMATION
  Report Type: 
  Country: None (occurrence: None)
  Receive Date: 20111010
  Receipt Date: 20110927
  Transmission Date: 20120403
  Serious: Yes (Death, Other)
  Sender: FDA-Public Use
  Company Number: PHHY2011BR85804

PATIENT
  Sex: Male
  Weight: 60 kg

DRUGS (1)
  1. DIOVAN [Suspect]
     Indication: HYPERTENSION
     Dosage: 1 DF, DAILY
     Route: 048

REACTIONS (4)
  - HEPATIC NEOPLASM [None]
  - PANCREATIC CARCINOMA [None]
  - DEATH [None]
  - LUNG NEOPLASM MALIGNANT [None]
